FAERS Safety Report 13953430 (Version 1)
Quarter: 2017Q3

REPORT INFORMATION
  Report Type: Spontaneous
  Country: US (occurrence: US)
  Receive Date: 20170911
  Receipt Date: 20170911
  Transmission Date: 20171128
  Serious: No
  Sender: FDA-Public Use
  Company Number: US-SHIRE-US201714010

PATIENT

DRUGS (1)
  1. XIIDRA [Suspect]
     Active Substance: LIFITEGRAST
     Indication: PRODUCT USED FOR UNKNOWN INDICATION
     Dosage: UNK MG, UNK
     Route: 047

REACTIONS (5)
  - Product closure issue [Unknown]
  - Product dropper issue [Unknown]
  - Product container issue [Unknown]
  - Instillation site pain [Unknown]
  - Instillation site pruritus [Unknown]
